FAERS Safety Report 4429564-9 (Version None)
Quarter: 2004Q3

REPORT INFORMATION
  Report Type: 
  Country: None (occurrence: None)
  Receive Date: 20040819
  Receipt Date: 20040810
  Transmission Date: 20050211
  Serious: Yes (Other)
  Sender: FDA-Public Use
  Company Number: NL-GLAXOSMITHKLINE-B0342451A

PATIENT
  Age: 24 Year
  Sex: Female

DRUGS (1)
  1. RANITIDINE HYDROCHLORIDE [Suspect]
     Dosage: 300MG PER DAY
     Dates: start: 20040408

REACTIONS (1)
  - STILLBIRTH [None]
